FAERS Safety Report 5963268-6 (Version None)
Quarter: 2008Q4

REPORT INFORMATION
  Report Type: 
  Country: None (occurrence: None)
  Receive Date: 20081124
  Receipt Date: 20081117
  Transmission Date: 20090506
  Serious: Yes (Other)
  Sender: FDA-Public Use
  Company Number: US-ASTRAZENECA-2008UW25687

PATIENT
  Age: 71 Year
  Sex: Female
  Weight: 64.4 kg

DRUGS (5)
  1. CRESTOR [Suspect]
     Route: 048
     Dates: start: 20061101
  2. CLONIDINE [Concomitant]
  3. SYNTHROID [Concomitant]
  4. METAFORM [Concomitant]
  5. XANEX [Concomitant]

REACTIONS (2)
  - PROTEINURIA [None]
  - TYPE 2 DIABETES MELLITUS [None]
